FAERS Safety Report 9989538 (Version 1)
Quarter: 2013Q4

REPORT INFORMATION
  Report Type: Spontaneous
  Country: JP (occurrence: None)
  Receive Date: 20131104
  Receipt Date: 20131104
  Transmission Date: 20140711
  Serious: Yes (Other)
  Sender: FDA-Public Use
  Company Number: VAL_02785_2013

PATIENT
  Age: 34 Year
  Sex: Female

DRUGS (1)
  1. METHERGIN [Suspect]
     Indication: POST ABORTION HAEMORRHAGE
     Dosage: UNITL NOT CONTINUING), (4 WEEKS 2 DAYS UNTIL NOT CONTINUING), (2 MONTH UNTIL UNKNOWN)
     Route: 048

REACTIONS (1)
  - Uterine haemorrhage [None]
